FAERS Safety Report 16772056 (Version 1)
Quarter: 2019Q3

REPORT INFORMATION
  Report Type: Spontaneous
  Country: US (occurrence: US)
  Receive Date: 20190904
  Receipt Date: 20190904
  Transmission Date: 20191005
  Serious: No
  Sender: FDA-Public Use
  Company Number: US-PTC THERAPEUTICS, INC.-US-2019PTC001095

PATIENT
  Sex: Male

DRUGS (1)
  1. EMFLAZA [Suspect]
     Active Substance: DEFLAZACORT
     Indication: MUSCULAR DYSTROPHY
     Dosage: 75 MG, (TAKE 2 1/2 TABLETS EVERY SATURDAY AND SUNDAY)
     Route: 048

REACTIONS (4)
  - Emotional disorder [Unknown]
  - Agitation [Unknown]
  - Off label use [Unknown]
  - Increased appetite [Unknown]
